FAERS Safety Report 8941871 (Version 2)
Quarter: 2012Q4

REPORT INFORMATION
  Report Type: 
  Country: CO (occurrence: CO)
  Receive Date: 20121203
  Receipt Date: 20121207
  Transmission Date: 20130627
  Serious: Yes (Death)
  Sender: FDA-Public Use
  Company Number: PHHY2012CO085277

PATIENT
  Age: 69 Year
  Sex: Male
  Weight: 77 kg

DRUGS (5)
  1. AFINITOR [Suspect]
     Indication: HEPATIC NEOPLASM MALIGNANT
     Dosage: 0.5 mg, UNK
     Route: 048
     Dates: start: 20120917, end: 20120928
  2. SANDOSTATIN LAR [Suspect]
     Indication: HEPATIC NEOPLASM MALIGNANT
     Dosage: 30 mg, UNK
     Route: 048
     Dates: end: 20120917
  3. LOSARTAN [Concomitant]
     Dosage: 50 mg, UNK
  4. NIFEDIPINE [Concomitant]
     Dosage: 30 mg, UNK
  5. FUROSEMIDE [Concomitant]
     Dosage: 40 mg, UNK

REACTIONS (5)
  - Multi-organ failure [Fatal]
  - Malignant neoplasm progression [Fatal]
  - Drug dispensing error [Not Recovered/Not Resolved]
  - Asthenia [Not Recovered/Not Resolved]
  - Decreased appetite [Not Recovered/Not Resolved]
